FAERS Safety Report 18188298 (Version 1)
Quarter: 2020Q3

REPORT INFORMATION
  Report Type: Spontaneous
  Country: US (occurrence: US)
  Receive Date: 20200824
  Receipt Date: 20200824
  Transmission Date: 20201103
  Serious: Yes (Death, Other)
  Sender: FDA-Public Use
  Company Number: US-GILEAD-2020-0491446

PATIENT
  Age: 81 Year
  Sex: Female

DRUGS (3)
  1. REMDESIVIR. [Suspect]
     Active Substance: REMDESIVIR
     Indication: COVID-19
     Dosage: 200 MG, ONCE
     Route: 042
     Dates: start: 20200817, end: 20200817
  2. CEFTRIAXONE. [Concomitant]
     Active Substance: CEFTRIAXONE
     Dosage: UNK
     Dates: start: 20200817, end: 20200817
  3. REMDESIVIR. [Suspect]
     Active Substance: REMDESIVIR
     Indication: COVID-19 PNEUMONIA

REACTIONS (5)
  - Transaminases increased [Not Recovered/Not Resolved]
  - Death [Fatal]
  - Acute respiratory failure [Unknown]
  - Alanine aminotransferase increased [Not Recovered/Not Resolved]
  - Supraventricular tachycardia [Unknown]

NARRATIVE: CASE EVENT DATE: 20200817
